FAERS Safety Report 4570098-9 (Version None)
Quarter: 2005Q1

REPORT INFORMATION
  Report Type: 
  Country: None (occurrence: None)
  Receive Date: 20050125
  Receipt Date: 20050125
  Transmission Date: 20050727
  Serious: Yes (Life-Threatening, Hospitalization)
  Sender: FDA-Public Use
  Company Number: None

PATIENT
  Age: 39 Year
  Sex: Female
  Weight: 61.2356 kg

DRUGS (2)
  1. CELEBREX [Suspect]
     Indication: ROTATOR CUFF SYNDROME
     Dosage: 200MG 1 X DAY
     Dates: start: 19990101, end: 19990401
  2. ESTRATEST H.S. [Concomitant]

REACTIONS (1)
  - MYOCARDIAL INFARCTION [None]
